FAERS Safety Report 24562339 (Version 6)
Quarter: 2025Q1

REPORT INFORMATION
  Report Type: Spontaneous
  Country: US (occurrence: US)
  Receive Date: 20241029
  Receipt Date: 20250220
  Transmission Date: 20250409
  Serious: No
  Sender: PFIZER
  Company Number: US-PFIZER INC-202400265200

PATIENT
  Age: 54 Year
  Sex: Male

DRUGS (5)
  1. TUKYSA [Suspect]
     Active Substance: TUCATINIB
     Indication: Adenocarcinoma of colon
     Dosage: 2 ^CAPSULES^ OF 150 MG, 1X/DAY
     Route: 048
     Dates: start: 202405
  2. TUKYSA [Suspect]
     Active Substance: TUCATINIB
     Dosage: 150 MG 2 TABLETS IN THE MORNING
  3. TUKYSA [Suspect]
     Active Substance: TUCATINIB
     Dosage: 150MG TWO TABLETS TWICE A DAY
  4. TUKYSA [Suspect]
     Active Substance: TUCATINIB
     Dosage: 150 MG 2 TABLETS IN THE MORNING
     Dates: end: 20250205
  5. TRASTUZUMAB [Concomitant]
     Active Substance: TRASTUZUMAB

REACTIONS (4)
  - Blood creatinine increased [Unknown]
  - Oral pain [Unknown]
  - Off label use [Unknown]
  - Drug dispensed to wrong patient [Unknown]

NARRATIVE: CASE EVENT DATE: 20240101
